FAERS Safety Report 5852881-2 (Version None)
Quarter: 2008Q3

REPORT INFORMATION
  Report Type: 
  Country: None (occurrence: None)
  Receive Date: 20080815
  Receipt Date: 20071026
  Transmission Date: 20090109
  Serious: Yes (Hospitalization)
  Sender: FDA-Public Use
  Company Number: 07H-163-0313408-00

PATIENT
  Age: 44 Year
  Sex: Male
  Weight: 93.441 kg

DRUGS (10)
  1. VANCOMYCIN HYDROCHLORIDE [Suspect]
     Indication: DRUG USE FOR UNKNOWN INDICATION
     Dosage: SEE IMAGE
     Route: 042
     Dates: start: 20070918, end: 20070924
  2. VANCOMYCIN HYDROCHLORIDE [Suspect]
     Indication: DRUG USE FOR UNKNOWN INDICATION
     Dosage: SEE IMAGE
     Route: 042
     Dates: start: 20070925, end: 20070927
  3. VANCOMYCIN HYDROCHLORIDE [Suspect]
     Indication: DRUG USE FOR UNKNOWN INDICATION
     Dosage: SEE IMAGE
     Route: 042
     Dates: start: 20070929, end: 20071002
  4. VANCOMYCIN HYDROCHLORIDE [Suspect]
     Indication: DRUG USE FOR UNKNOWN INDICATION
     Dosage: SEE IMAGE
     Route: 042
     Dates: start: 20071005
  5. ZOSYN [Concomitant]
  6. LISINOPRIL [Concomitant]
  7. NOVOLIN 70/30 (HUMAN MIXTARD /000806401/) [Concomitant]
  8. GLYBURIDE [Concomitant]
  9. ADOCARD (ADONIS VERNALIS EXTRACT) [Concomitant]
  10. VYTORIN [Concomitant]

REACTIONS (2)
  - NEPHROPATHY TOXIC [None]
  - THROMBOCYTOPENIA [None]
